FAERS Safety Report 22013491 (Version 1)
Quarter: 2023Q1

REPORT INFORMATION
  Report Type: Spontaneous
  Country: US (occurrence: US)
  Receive Date: 20230220
  Receipt Date: 20230220
  Transmission Date: 20230417
  Serious: No
  Sender: FDA-Public Use
  Company Number: US-INCYTE CORPORATION-2023IN001485

PATIENT

DRUGS (1)
  1. JAKAFI [Suspect]
     Active Substance: RUXOLITINIB
     Indication: Myelofibrosis
     Dosage: 10 MILLIGRAM, BID
     Route: 048
     Dates: start: 20170218

REACTIONS (6)
  - Hypersensitivity [Unknown]
  - Scab [Unknown]
  - Laboratory test abnormal [Unknown]
  - Limb discomfort [Unknown]
  - Gait inability [Unknown]
  - Product dose omission issue [Unknown]
